FAERS Safety Report 5931313-X (Version None)
Quarter: 2008Q4

REPORT INFORMATION
  Report Type: 
  Country: None (occurrence: None)
  Receive Date: 20081009
  Receipt Date: 20080710
  Transmission Date: 20090506
  Serious: Yes (Hospitalization)
  Sender: FDA-Public Use
  Company Number: PHEH2008US05376

PATIENT
  Age: 74 Year
  Sex: Female
  Weight: 47.6 kg

DRUGS (1)
  1. ZOMETA [Suspect]
     Indication: MULTIPLE MYELOMA
     Dosage: 4MG MONTHLY, INTRAVENOUS
     Route: 042
     Dates: start: 20080608

REACTIONS (5)
  - BONE PAIN [None]
  - COUGH [None]
  - DYSPNOEA [None]
  - PYREXIA [None]
  - SPUTUM PURULENT [None]
